FAERS Safety Report 4767025-8 (Version None)
Quarter: 2005Q3

REPORT INFORMATION
  Report Type: 
  Country: None (occurrence: None)
  Receive Date: 20050913
  Receipt Date: 20050901
  Transmission Date: 20060218
  Serious: Yes (Other)
  Sender: FDA-Public Use
  Company Number: US-JNJFOC-20050900232

PATIENT
  Sex: Male
  Weight: 80.74 kg

DRUGS (14)
  1. INFLIXIMAB [Suspect]
     Indication: RHEUMATOID ARTHRITIS
     Route: 042
  2. METHOTREXATE [Concomitant]
  3. HYDROXYCHLOROQUINE SULFATE [Concomitant]
  4. FOLIC ACID [Concomitant]
  5. NORVASC [Concomitant]
  6. PREDNISONE [Concomitant]
  7. PROPOXY-N [Concomitant]
  8. GLUCOSAMINE/CHONDROITIN [Concomitant]
  9. GLUCOSAMINE/CHONDROITIN [Concomitant]
  10. GLUCOSAMINE/CHONDROITIN [Concomitant]
  11. GLUCOSAMINE/CHONDROITIN [Concomitant]
  12. LUMIGAN [Concomitant]
     Dosage: 1 DROP IN EACH EYE DAILY
     Route: 047
  13. ASCORBIC ACID [Concomitant]
  14. VITAMIN E [Concomitant]

REACTIONS (1)
  - SQUAMOUS CELL CARCINOMA OF SKIN [None]
